FAERS Safety Report 5810775-2 (Version None)
Quarter: 2008Q3

REPORT INFORMATION
  Report Type: 
  Country: None (occurrence: None)
  Receive Date: 20080710
  Receipt Date: 20080624
  Transmission Date: 20090109
  Serious: Yes (Other)
  Sender: FDA-Public Use
  Company Number: 002#8#2008-00522

PATIENT
  Age: 17 Year
  Sex: Female

DRUGS (2)
  1. ALPRAZOLAM [Suspect]
     Indication: DEPRESSION
  2. PAROXETINE HCL [Suspect]
     Indication: DEPRESSION

REACTIONS (2)
  - INCORRECT DOSE ADMINISTERED [None]
  - PARTNER STRESS [None]
